FAERS Safety Report 10014819 (Version 3)
Quarter: 2014Q1

REPORT INFORMATION
  Report Type: Report from Study
  Country: GB (occurrence: GB)
  Receive Date: 20140317
  Receipt Date: 20140320
  Transmission Date: 20141002
  Serious: Yes (Death, Hospitalization)
  Sender: FDA-Public Use
  Company Number: GB-009507513-1210GBR011282

PATIENT
  Age: 77 Year
  Sex: Male
  Weight: 117 kg

DRUGS (3)
  1. BLINDED SITAGLIPTIN PHOSPHATE [Suspect]
     Indication: TYPE 2 DIABETES MELLITUS
     Dosage: UNK
     Route: 048
     Dates: start: 20120320, end: 20121003
  2. OMEPRAZOLE [Concomitant]
     Indication: DYSPEPSIA
     Dosage: TOTAL DAILY DOSE: 40 MG
     Dates: start: 20120914
  3. OMEPRAZOLE [Concomitant]
     Indication: DYSPHAGIA

REACTIONS (1)
  - Oesophageal adenocarcinoma [Fatal]
